FAERS Safety Report 9053647 (Version 1)
Quarter: 2013Q1

REPORT INFORMATION
  Report Type: Spontaneous
  Country: US (occurrence: None)
  Receive Date: 20130201
  Receipt Date: 20130201
  Transmission Date: 20140127
  Serious: Yes (Other)
  Sender: FDA-Public Use
  Company Number: None

PATIENT
  Age: 73 Year
  Sex: Male
  Weight: 59.3 kg

DRUGS (3)
  1. VFEND 335 MG PFIZER [Suspect]
     Indication: ANTIFUNGAL TREATMENT
     Route: 042
     Dates: start: 20130128, end: 20130129
  2. VFEND 335 MG PFIZER [Suspect]
     Indication: NEUTROPENIA
     Route: 042
     Dates: start: 20130128, end: 20130129
  3. VFEND 200 MG PFIZER [Suspect]
     Route: 049
     Dates: start: 20130129, end: 20130129

REACTIONS (1)
  - Photophobia [None]
